FAERS Safety Report 5494419-8 (Version None)
Quarter: 2007Q4

REPORT INFORMATION
  Report Type: 
  Country: None (occurrence: None)
  Receive Date: 20071022
  Receipt Date: 20071022
  Transmission Date: 20080405
  Serious: Yes (Other)
  Sender: FDA-Public Use
  Company Number: None

PATIENT
  Age: 23 Year
  Sex: Female
  Weight: 77.1115 kg

DRUGS (6)
  1. LOESTRIN 1.5/30 [Suspect]
     Indication: ACNE
     Dosage: 1 TABLET DAILY PO
     Route: 048
     Dates: start: 20061207, end: 20071018
  2. LOESTRIN 1.5/30 [Suspect]
     Indication: MUSCLE SPASMS
     Dosage: 1 TABLET DAILY PO
     Route: 048
     Dates: start: 20061207, end: 20071018
  3. LOESTRIN 1.5/30 [Suspect]
     Indication: ORAL CONTRACEPTION
     Dosage: 1 TABLET DAILY PO
     Route: 048
     Dates: start: 20061207, end: 20071018
  4. SINGULAIR [Concomitant]
  5. ZYRTEC [Concomitant]
  6. IBUPROFEN [Concomitant]

REACTIONS (1)
  - ACNE CYSTIC [None]
